FAERS Safety Report 25779952 (Version 1)
Quarter: 2025Q3

REPORT INFORMATION
  Report Type: Spontaneous
  Country: EU (occurrence: EU)
  Receive Date: 20250909
  Receipt Date: 20250909
  Transmission Date: 20251020
  Serious: Yes (Other)
  Sender: ELI LILLY AND COMPANY
  Company Number: EU-Merck Healthcare KGaA-2025044284

PATIENT
  Sex: Male

DRUGS (3)
  1. ERBITUX [Suspect]
     Active Substance: CETUXIMAB
     Indication: Colorectal cancer metastatic
     Route: 065
     Dates: start: 20250701
  2. ERBITUX [Suspect]
     Active Substance: CETUXIMAB
     Route: 065
     Dates: start: 20250708
  3. ENCORAFENIB [Concomitant]
     Active Substance: ENCORAFENIB
     Indication: Colorectal cancer metastatic
     Dosage: -1 UNK, DAILY
     Dates: start: 20250729, end: 20250805

REACTIONS (2)
  - Peripheral arterial occlusive disease [Unknown]
  - Off label use [Unknown]
